FAERS Safety Report 4699738-0 (Version None)
Quarter: 2005Q2

REPORT INFORMATION
  Report Type: 
  Country: None (occurrence: None)
  Receive Date: 20050623
  Receipt Date: 20050616
  Transmission Date: 20051028
  Serious: Yes (Hospitalization)
  Sender: FDA-Public Use
  Company Number: 2005-06-1016

PATIENT
  Age: 10 Year
  Sex: Female

DRUGS (1)
  1. AERIUS (DESLORATADINE) TABLETS  ^CLARINEX^ [Suspect]
     Indication: HYPERSENSITIVITY
     Dosage: 5 MG QD ORAL
     Route: 048

REACTIONS (1)
  - VIRAL INFECTION [None]
